FAERS Safety Report 6348941-2 (Version None)
Quarter: 2009Q3

REPORT INFORMATION
  Report Type: 
  Country: None (occurrence: None)
  Receive Date: 20090911
  Receipt Date: 20090908
  Transmission Date: 20100115
  Serious: Yes (Hospitalization)
  Sender: FDA-Public Use
  Company Number: US-BAYER-200913874BCC

PATIENT
  Age: 61 Year
  Sex: Female

DRUGS (3)
  1. NAPROXEN [Suspect]
     Indication: PAIN
     Route: 048
  2. BRIVANIB ALANINATE OR PLACEBO [Suspect]
     Indication: COLORECTAL CANCER METASTATIC
     Route: 048
  3. CETUXIMAB [Suspect]
     Indication: COLORECTAL CANCER METASTATIC
     Route: 042

REACTIONS (1)
  - GASTROINTESTINAL HAEMORRHAGE [None]
